FAERS Safety Report 13780820 (Version 1)
Quarter: 2017Q3

REPORT INFORMATION
  Report Type: Spontaneous
  Country: US (occurrence: US)
  Receive Date: 20170724
  Receipt Date: 20170724
  Transmission Date: 20171127
  Serious: No
  Sender: FDA-Public Use
  Company Number: US-ASTRAZENECA-2017SE74465

PATIENT
  Age: 77 Year
  Sex: Male

DRUGS (1)
  1. SEROQUEL [Suspect]
     Active Substance: QUETIAPINE FUMARATE
     Route: 048
     Dates: start: 2017

REACTIONS (6)
  - Drug ineffective [Unknown]
  - Hallucination [Unknown]
  - Illusion [Unknown]
  - Memory impairment [Unknown]
  - Confusional state [Unknown]
  - Parkinson^s disease psychosis [Unknown]

NARRATIVE: CASE EVENT DATE: 201705
